FAERS Safety Report 4329739-3 (Version None)
Quarter: 2004Q2

REPORT INFORMATION
  Report Type: 
  Country: None (occurrence: None)
  Receive Date: 20040401
  Receipt Date: 20040330
  Transmission Date: 20050107
  Serious: Yes (Hospitalization)
  Sender: FDA-Public Use
  Company Number: US-GLAXOSMITHKLINE-A0505121A

PATIENT
  Age: 59 Year
  Sex: Female

DRUGS (4)
  1. PARNATE [Suspect]
     Indication: DEPRESSION
     Dosage: 10MG PER DAY
     Route: 048
     Dates: start: 19870101, end: 20040317
  2. PRILOSEC [Concomitant]
  3. LIPITOR [Concomitant]
  4. XANAX [Concomitant]
     Indication: ANXIETY

REACTIONS (4)
  - ANXIETY [None]
  - BALANCE DISORDER [None]
  - LOSS OF CONSCIOUSNESS [None]
  - PARAESTHESIA [None]
